FAERS Safety Report 7857870-4 (Version None)
Quarter: 2011Q4

REPORT INFORMATION
  Report Type: 
  Country: None (occurrence: None)
  Receive Date: 20111027
  Receipt Date: 20110223
  Transmission Date: 20120403
  Serious: No
  Sender: FDA-Public Use
  Company Number: US-BAYER-2011-018493

PATIENT

DRUGS (2)
  1. ALEVE (CAPLET) [Suspect]
     Dosage: UNK UNK, PRN
     Route: 048
  2. PREDNISONE [Concomitant]
     Dosage: 5 MG, UNK

REACTIONS (1)
  - DRUG INEFFECTIVE [None]
